FAERS Safety Report 4810548-3 (Version None)
Quarter: 2005Q4

REPORT INFORMATION
  Report Type: 
  Country: None (occurrence: None)
  Receive Date: 20051025
  Receipt Date: 20051025
  Transmission Date: 20060501
  Serious: No
  Sender: FDA-Public Use
  Company Number: None

PATIENT
  Age: 62 Year
  Sex: Female

DRUGS (9)
  1. QUETIAPINE FUMARATE [Suspect]
     Dosage: 25 PO BID
  2. CAPTOPRIL [Concomitant]
  3. CLONIDINE [Concomitant]
  4. CLONIDINE HCL [Concomitant]
  5. HEPARIN [Concomitant]
  6. ISOSORBIDE DINITRATE [Concomitant]
  7. METOPROLOL [Concomitant]
  8. NICOTINE [Concomitant]
  9. RANITIDINE [Concomitant]

REACTIONS (4)
  - CARDIAC ARREST [None]
  - ELECTROCARDIOGRAM QT PROLONGED [None]
  - VENTRICULAR FIBRILLATION [None]
  - VENTRICULAR TACHYCARDIA [None]
